FAERS Safety Report 4732248-0 (Version None)
Quarter: 2005Q3

REPORT INFORMATION
  Report Type: 
  Country: None (occurrence: None)
  Receive Date: 20050725
  Receipt Date: 20040720
  Transmission Date: 20060218
  Serious: Yes (Death)
  Sender: FDA-Public Use
  Company Number: USA-2004-0016091

PATIENT
  Age: 36 Year
  Sex: Female
  Weight: 81.2 kg

DRUGS (5)
  1. MORPHINE SULFATE [Suspect]
  2. DIPHENHYDRAMINE HCL [Suspect]
  3. QUININE SULFATE [Suspect]
  4. CITALOPRAM (CITALOPRAM) [Suspect]
  5. ETHANOL (ETHANOL) [Suspect]

REACTIONS (1)
  - ACCIDENTAL OVERDOSE [None]
